FAERS Safety Report 9333505 (Version 1)
Quarter: 2013Q2

REPORT INFORMATION
  Report Type: Spontaneous
  Country: CH (occurrence: CH)
  Receive Date: 20130606
  Receipt Date: 20130606
  Transmission Date: 20140414
  Serious: Yes (Death, Hospitalization)
  Sender: FDA-Public Use
  Company Number: CH-TEVA-408719ISR

PATIENT
  Age: 77 Year
  Sex: Male

DRUGS (3)
  1. IRFEN [Suspect]
     Dosage: 400 MILLIGRAM DAILY;
     Route: 048
     Dates: start: 20130423, end: 20130425
  2. NORVASC [Concomitant]
     Dosage: 5 MILLIGRAM DAILY;
     Route: 048
  3. DUODART [Concomitant]
     Dosage: 1 DOSAGE FORMS DAILY; 1 DF = 0.4 MG TAMSULOSIN AND 0.5 MG DUTASTARIDE
     Route: 048

REACTIONS (4)
  - Cardiac arrest [Fatal]
  - Upper gastrointestinal haemorrhage [Fatal]
  - Anaemia [Fatal]
  - Melaena [Recovered/Resolved]
